FAERS Safety Report 20112255 (Version 1)
Quarter: 2021Q4

REPORT INFORMATION
  Report Type: Spontaneous
  Country: CN (occurrence: CN)
  Receive Date: 20211125
  Receipt Date: 20211125
  Transmission Date: 20220304
  Serious: Yes (Other)
  Sender: FDA-Public Use
  Company Number: CN-002147023-NVSC2021CN264811

PATIENT
  Age: 66 Year
  Sex: Female
  Weight: 60 kg

DRUGS (1)
  1. RANIBIZUMAB [Suspect]
     Active Substance: RANIBIZUMAB
     Indication: Retinal vein occlusion
     Route: 050
     Dates: start: 20211104, end: 20211104

REACTIONS (3)
  - Retinopathy proliferative [Unknown]
  - Visual acuity reduced [Unknown]
  - Vitreous floaters [Unknown]

NARRATIVE: CASE EVENT DATE: 20211104
